FAERS Safety Report 4645594-6 (Version None)
Quarter: 2005Q2

REPORT INFORMATION
  Report Type: 
  Country: None (occurrence: None)
  Receive Date: 20050331
  Receipt Date: 20050117
  Transmission Date: 20051028
  Serious: No
  Sender: FDA-Public Use
  Company Number: 05P-163-0286892-00

PATIENT
  Sex: Female
  Weight: 76.2043 kg

DRUGS (7)
  1. HUMIRA [Suspect]
     Indication: RHEUMATOID ARTHRITIS
     Dosage: 40 MG, 1 IN 2 WK, SUBCUTANEOUS
     Route: 058
     Dates: start: 20030601
  2. PREDNISONE [Concomitant]
  3. METHOTREXATE [Concomitant]
  4. FOLIC ACID [Concomitant]
  5. ONE-A-DAY [Concomitant]
  6. FISH OIL [Concomitant]
  7. PANTOPRAZOLE [Concomitant]

REACTIONS (3)
  - DIZZINESS [None]
  - MENIERE'S DISEASE [None]
  - NAUSEA [None]
